FAERS Safety Report 8807258 (Version 7)
Quarter: 2012Q4

REPORT INFORMATION
  Report Type: 
  Country: US (occurrence: US)
  Receive Date: 20120925
  Receipt Date: 20121112
  Transmission Date: 20130627
  Serious: No
  Sender: FDA-Public Use
  Company Number: US-ASTRAZENECA-2012SE73132

PATIENT
  Age: 69 Year
  Sex: Male

DRUGS (3)
  1. SYMBICORT PMDI [Suspect]
     Indication: ASTHMA
     Dosage: 160/4.5 MCG, FOUR TIMES A DAY
     Route: 055
  2. SYMBICORT PMDI [Suspect]
     Indication: ASTHMA
     Dosage: 160/4.5 MCG, TWO TIMES A DAY
     Route: 055
  3. SINGULAIR [Concomitant]
     Indication: ASTHMA

REACTIONS (6)
  - Activities of daily living impaired [Unknown]
  - Asthma [Unknown]
  - Exercise tolerance decreased [Unknown]
  - Insomnia [Unknown]
  - Intentional drug misuse [Unknown]
  - Drug ineffective [Unknown]
